FAERS Safety Report 11294980 (Version 1)
Quarter: 2015Q3

REPORT INFORMATION
  Report Type: Spontaneous
  Country: IL (occurrence: None)
  Receive Date: 20150722
  Receipt Date: 20150722
  Transmission Date: 20151125
  Serious: Yes (Hospitalization)
  Sender: FDA-Public Use
  Company Number: None

PATIENT
  Sex: Female
  Weight: 58 kg

DRUGS (7)
  1. VIEKIRAX (OMBITASVIR, PARITAPREVIR, RITONAVIR) [Suspect]
     Active Substance: OMBITASVIR\PARITAPREVIR\RITONAVIR
     Indication: HEPATITIS C
     Dosage: 1 PILL
     Dates: start: 20150518
  2. SPIRONOLACTONE. [Concomitant]
     Active Substance: SPIRONOLACTONE
  3. DERALIN [Concomitant]
     Active Substance: PROPRANOLOL HYDROCHLORIDE
  4. CONTROLOC [Concomitant]
     Active Substance: PANTOPRAZOLE SODIUM
  5. NORVASC [Concomitant]
     Active Substance: AMLODIPINE BESYLATE
  6. ATACA [Concomitant]
  7. EXVIERA [Suspect]
     Active Substance: DASABUVIR
     Indication: HEPATITIS C
     Dosage: 2 PILLS
     Dates: start: 20150518

REACTIONS (3)
  - Upper gastrointestinal haemorrhage [None]
  - Dizziness [None]
  - Iron deficiency anaemia [None]

NARRATIVE: CASE EVENT DATE: 20150624
